FAERS Safety Report 9058473 (Version 1)
Quarter: 2013Q1

REPORT INFORMATION
  Report Type: Spontaneous
  Country: US (occurrence: None)
  Receive Date: 20130205
  Receipt Date: 20130205
  Transmission Date: 20140127
  Serious: Yes (Other)
  Sender: FDA-Public Use
  Company Number: None

PATIENT
  Age: 37 Year
  Sex: Male
  Weight: 74.39 kg

DRUGS (1)
  1. TOLVAPTAN [Suspect]
     Indication: CONGENITAL CYSTIC KIDNEY DISEASE
     Dosage: 30 MG 2 IN MORNING PO?30 MG 1 IN EVENING PO
     Route: 048
     Dates: start: 20120901, end: 20121108

REACTIONS (5)
  - Kidney infection [None]
  - Arthralgia [None]
  - Aspartate aminotransferase increased [None]
  - Alanine aminotransferase increased [None]
  - Abdominal pain upper [None]
